FAERS Safety Report 9101853 (Version 2)
Quarter: 2013Q1

REPORT INFORMATION
  Report Type: Report from Study
  Country: US (occurrence: US)
  Receive Date: 20130218
  Receipt Date: 20130221
  Transmission Date: 20140127
  Serious: Yes (Hospitalization)
  Sender: FDA-Public Use
  Company Number: US-ASTELLAS-2013US001289

PATIENT
  Age: 84 Year
  Sex: Male
  Weight: 56 kg

DRUGS (2)
  1. ERLOTINIB TABLET [Suspect]
     Indication: PANCREATIC CARCINOMA
     Dosage: 100 MG, UID/QD
     Route: 048
     Dates: start: 20121012
  2. GEMCITABINE [Suspect]
     Indication: PANCREATIC CARCINOMA
     Dosage: 1000 MG/M2, WEEKLY
     Route: 042
     Dates: start: 20121012

REACTIONS (2)
  - Diverticulitis [Not Recovered/Not Resolved]
  - Gastrointestinal anastomotic leak [Not Recovered/Not Resolved]
